FAERS Safety Report 5552479-X (Version None)
Quarter: 2007Q4

REPORT INFORMATION
  Report Type: 
  Country: None (occurrence: None)
  Receive Date: 20071212
  Receipt Date: 20070616
  Transmission Date: 20080405
  Serious: No
  Sender: FDA-Public Use
  Company Number: US-AMGEN-KDL229988

PATIENT
  Sex: Female

DRUGS (3)
  1. ENBREL [Suspect]
     Indication: RHEUMATOID ARTHRITIS
     Route: 058
     Dates: start: 20070529
  2. PLAQUENIL [Concomitant]
     Dates: start: 20020101
  3. METHOTREXATE [Concomitant]
     Dates: start: 20040101

REACTIONS (2)
  - CONTUSION [None]
  - HEADACHE [None]
